FAERS Safety Report 18177630 (Version 1)
Quarter: 2020Q3

REPORT INFORMATION
  Report Type: Other
  Country: BE (occurrence: BE)
  Receive Date: 20200821
  Receipt Date: 20200821
  Transmission Date: 20201103
  Serious: Yes (Death)
  Sender: FDA-Public Use
  Company Number: BE-ROCHE-2661966

PATIENT
  Age: 37 Year
  Sex: Female

DRUGS (2)
  1. TECENTRIQ [Suspect]
     Active Substance: ATEZOLIZUMAB
     Indication: TRIPLE NEGATIVE BREAST CANCER
     Dosage: 1200MG/20ML
     Route: 042
     Dates: start: 20200610, end: 20200806
  2. TECENTRIQ [Suspect]
     Active Substance: ATEZOLIZUMAB
     Dosage: 840 MG/14 ML
     Route: 042

REACTIONS (2)
  - Pneumonitis [Fatal]
  - Pericarditis [Fatal]

NARRATIVE: CASE EVENT DATE: 20200806
